FAERS Safety Report 6688160-3 (Version None)
Quarter: 2010Q2

REPORT INFORMATION
  Report Type: 
  Country: None (occurrence: None)
  Receive Date: 20100420
  Receipt Date: 20100409
  Transmission Date: 20101027
  Serious: Yes (Other)
  Sender: FDA-Public Use
  Company Number: CHPA2010US06525

PATIENT
  Age: 27 Year
  Sex: Male
  Weight: 81.633 kg

DRUGS (1)
  1. EXCEDRIN (MIGRAINE) [Suspect]
     Indication: HEADACHE
     Dosage: UNK, UNK
     Route: 048

REACTIONS (5)
  - EATING DISORDER [None]
  - HYPOPHAGIA [None]
  - INCORRECT DOSE ADMINISTERED [None]
  - MALAISE [None]
  - NEOPLASM MALIGNANT [None]
